FAERS Safety Report 10460952 (Version 4)
Quarter: 2015Q1

REPORT INFORMATION
  Report Type: Spontaneous
  Country: JP (occurrence: JP)
  Receive Date: 20140918
  Receipt Date: 20150324
  Transmission Date: 20150720
  Serious: Yes (Hospitalization, Disabling, Other)
  Sender: FDA-Public Use
  Company Number: PHHY2014JP118235

PATIENT
  Age: 65 Year
  Sex: Female
  Weight: 60 kg

DRUGS (15)
  1. ZOMETA [Suspect]
     Active Substance: ZOLEDRONIC ACID
     Indication: BREAST CANCER RECURRENT
     Dosage: 4 MG, 1 TIMES PER3 WEEKS
     Route: 041
     Dates: start: 20140407
  2. PERJETA [Suspect]
     Active Substance: PERTUZUMAB
     Dosage: 420 MG, PER ADMINISTRATION
     Route: 041
     Dates: start: 20140519
  3. PERJETA [Suspect]
     Active Substance: PERTUZUMAB
     Dosage: 420 MG, PER ADMINISTRATION
     Route: 041
     Dates: start: 20140630
  4. ZOMETA [Suspect]
     Active Substance: ZOLEDRONIC ACID
     Route: 041
     Dates: start: 20140407
  5. FEMARA [Suspect]
     Active Substance: LETROZOLE
     Indication: BREAST CANCER RECURRENT
     Dosage: 2.5 MG,PER 7 TIMES PER 1 WEEK
     Route: 048
     Dates: start: 20140317
  6. PERJETA [Suspect]
     Active Substance: PERTUZUMAB
     Dosage: 420 MG, PER ADMINISTRATION
     Route: 041
     Dates: start: 20140818
  7. DOCETAXEL. [Suspect]
     Active Substance: DOCETAXEL
     Indication: PRODUCT USED FOR UNKNOWN INDICATION
     Route: 065
  8. HERCEPTIN [Suspect]
     Active Substance: TRASTUZUMAB
     Dosage: 6 MG/KG, 1 TIME PER 3 WEEKS
     Route: 041
     Dates: start: 20140407
  9. PERJETA [Suspect]
     Active Substance: PERTUZUMAB
     Dosage: 420 MG, PER ADMINISTRATION
     Route: 041
     Dates: start: 20140407
  10. PERJETA [Suspect]
     Active Substance: PERTUZUMAB
     Dosage: 420 MG, PER ADMINISTRATION
     Route: 041
     Dates: start: 20140428
  11. HERCEPTIN [Suspect]
     Active Substance: TRASTUZUMAB
     Indication: PRODUCT USED FOR UNKNOWN INDICATION
     Dosage: 8 MG/KG, 1 TIME PER 3 WEEKS
     Route: 041
     Dates: start: 20140317
  12. PERJETA [Suspect]
     Active Substance: PERTUZUMAB
     Dosage: 420 MG, PER ADMINISTRATION
     Route: 041
     Dates: start: 20140728
  13. PERJETA [Suspect]
     Active Substance: PERTUZUMAB
     Dosage: 420 MG, PER ADMINISTRATION
     Route: 041
     Dates: start: 20140609
  14. TAXOTERE [Suspect]
     Active Substance: DOCETAXEL
     Indication: PRODUCT USED FOR UNKNOWN INDICATION
     Dosage: 100 MG, 1 TIME PER 3 WEEKS
     Route: 065
     Dates: start: 20140317, end: 20140519
  15. PERJETA [Suspect]
     Active Substance: PERTUZUMAB
     Indication: PRODUCT USED FOR UNKNOWN INDICATION
     Dosage: 840 MG, PER ADMINISTRATION
     Route: 041
     Dates: start: 20140317

REACTIONS (4)
  - Febrile neutropenia [Recovering/Resolving]
  - Pyrexia [Recovered/Resolved]
  - Interstitial lung disease [Recovered/Resolved]
  - Dyspnoea [Unknown]

NARRATIVE: CASE EVENT DATE: 20140502
